FAERS Safety Report 13490278 (Version 1)
Quarter: 2017Q2

REPORT INFORMATION
  Report Type: Spontaneous
  Country: US (occurrence: US)
  Receive Date: 20170427
  Receipt Date: 20170427
  Transmission Date: 20170830
  Serious: No
  Sender: FDA-Public Use
  Company Number: US-PFIZER INC-2017177611

PATIENT
  Age: 56 Year
  Sex: Female

DRUGS (3)
  1. DARVOCET-N 100 [Suspect]
     Active Substance: ACETAMINOPHEN\PROPOXYPHENE NAPSYLATE
  2. ERYTHROMYCIN. [Suspect]
     Active Substance: ERYTHROMYCIN
  3. DARVON [Suspect]
     Active Substance: PROPOXYPHENE HYDROCHLORIDE

REACTIONS (1)
  - Drug hypersensitivity [Not Recovered/Not Resolved]
